FAERS Safety Report 17594512 (Version 2)
Quarter: 2020Q2

REPORT INFORMATION
  Report Type: Spontaneous
  Country: AR (occurrence: AR)
  Receive Date: 20200327
  Receipt Date: 20200402
  Transmission Date: 20200713
  Serious: Yes (Death)
  Sender: FDA-Public Use
  Company Number: AR-B.I. PHARMACEUTICALS,INC./RIDGEFIELD-2020-BI-017015

PATIENT
  Age: 80 Year
  Sex: Female

DRUGS (1)
  1. OFEV [Suspect]
     Active Substance: NINTEDANIB
     Indication: IDIOPATHIC PULMONARY FIBROSIS
     Route: 048
     Dates: start: 201906, end: 201912

REACTIONS (3)
  - Cardio-respiratory arrest [Fatal]
  - Idiopathic pulmonary fibrosis [Fatal]
  - Chronic respiratory failure [Fatal]

NARRATIVE: CASE EVENT DATE: 201912
